FAERS Safety Report 8439895 (Version 2)
Quarter: 2013Q4

REPORT INFORMATION
  Report Type: Spontaneous
  Country: US (occurrence: US)
  Receive Date: 20120305
  Receipt Date: 20131101
  Transmission Date: 20140711
  Serious: Yes (Hospitalization, Other)
  Sender: FDA-Public Use
  Company Number: US-BAYER-2012-018958

PATIENT
  Age: 27 Year
  Sex: Female

DRUGS (6)
  1. YAZ [Suspect]
     Dosage: UNK
     Dates: start: 200701, end: 200809
  2. LISINOPRIL [Concomitant]
     Dosage: 10 MG, QID
     Route: 048
  3. PREVACID [Concomitant]
     Dosage: OTC
  4. PROTONIX [Concomitant]
     Dosage: 40 MG, UNK
     Route: 042
  5. PRILOSEC [Concomitant]
     Dosage: EVERYDAY
     Route: 048
  6. BENTYL [Concomitant]
     Dosage: 20 MG, QID
     Route: 048

REACTIONS (5)
  - Gallbladder disorder [None]
  - Cholecystitis chronic [None]
  - Pain [None]
  - Anxiety [None]
  - Psychological trauma [None]
